FAERS Safety Report 25325076 (Version 2)
Quarter: 2025Q2

REPORT INFORMATION
  Report Type: Report from Study
  Country: DE (occurrence: DE)
  Receive Date: 20250516
  Receipt Date: 20250609
  Transmission Date: 20250716
  Serious: Yes (Other)
  Sender: MYLAN
  Company Number: DE-MYLANLABS-2024M1103891

PATIENT
  Sex: Female

DRUGS (4)
  1. GLATIRAMER ACETATE [Suspect]
     Active Substance: GLATIRAMER ACETATE
     Indication: Multiple sclerosis
     Dosage: UNK, 3XW, (40 MILLIGRAM PER MILLILITRE, 3XW)
     Dates: start: 20230807, end: 20250601
  2. GLATIRAMER ACETATE [Suspect]
     Active Substance: GLATIRAMER ACETATE
     Dosage: UNK, 3XW, (40 MILLIGRAM PER MILLILITRE, 3XW)
     Route: 058
     Dates: start: 20230807, end: 20250601
  3. GLATIRAMER ACETATE [Suspect]
     Active Substance: GLATIRAMER ACETATE
     Dosage: UNK, 3XW, (40 MILLIGRAM PER MILLILITRE, 3XW)
     Route: 058
     Dates: start: 20230807, end: 20250601
  4. GLATIRAMER ACETATE [Suspect]
     Active Substance: GLATIRAMER ACETATE
     Dosage: UNK, 3XW, (40 MILLIGRAM PER MILLILITRE, 3XW)
     Dates: start: 20230807, end: 20250601

REACTIONS (2)
  - Multiple sclerosis [Unknown]
  - Flushing [Not Recovered/Not Resolved]

NARRATIVE: CASE EVENT DATE: 20240801
